FAERS Safety Report 9554023 (Version 2)
Quarter: 2013Q4

REPORT INFORMATION
  Report Type: Report from Study
  Country: MX (occurrence: MX)
  Receive Date: 20130925
  Receipt Date: 20131105
  Transmission Date: 20140711
  Serious: Yes (Hospitalization)
  Sender: FDA-Public Use
  Company Number: MX-TAKEDA-2013TJP001082

PATIENT
  Sex: 0

DRUGS (2)
  1. PIOGLITAZONE, METFORMIN [Suspect]
     Dosage: UNK
     Route: 048
  2. PIOGLITAZONE [Suspect]

REACTIONS (1)
  - Renal disorder [Recovered/Resolved]
